FAERS Safety Report 7988551-4 (Version None)
Quarter: 2011Q4

REPORT INFORMATION
  Report Type: 
  Country: None (occurrence: None)
  Receive Date: 20111218
  Receipt Date: 20100919
  Transmission Date: 20120403
  Serious: Yes (Other)
  Sender: FDA-Public Use
  Company Number: PHHY2010MY092670

PATIENT
  Age: 56 Year

DRUGS (1)
  1. ZOLEDRONOC ACID [Suspect]
     Route: 042

REACTIONS (6)
  - ASTHENIA [None]
  - COMMINUTED FRACTURE [None]
  - MUSCULOSKELETAL STIFFNESS [None]
  - RADIUS FRACTURE [None]
  - CONTUSION [None]
  - FALL [None]
